FAERS Safety Report 13099337 (Version 5)
Quarter: 2018Q2

REPORT INFORMATION
  Report Type: Spontaneous
  Country: ES (occurrence: ES)
  Receive Date: 20170109
  Receipt Date: 20180502
  Transmission Date: 20180711
  Serious: Yes (Life-Threatening, Hospitalization, Other)
  Sender: FDA-Public Use
  Company Number: ALCN2017ES000442

PATIENT
  Age: 7 Year
  Sex: Male

DRUGS (4)
  1. SALBUTAMOL [Interacting]
     Active Substance: ALBUTEROL
     Indication: ASTHMA
     Dosage: UNK
     Route: 065
  2. SALBUTAMOL [Interacting]
     Active Substance: ALBUTEROL
     Dosage: 2 OT, (2 PUFFS)
     Route: 065
  3. TIMOLOL. [Suspect]
     Active Substance: TIMOLOL
     Indication: INTRAOCULAR PRESSURE INCREASED
     Dosage: UNK
     Route: 061
  4. SALBUTAMOL [Interacting]
     Active Substance: ALBUTEROL
     Indication: DYSPNOEA
     Dosage: UNK, Q8H
     Route: 065

REACTIONS (6)
  - Drug interaction [Recovered/Resolved]
  - Loss of consciousness [Recovered/Resolved]
  - Asthma [Recovered/Resolved]
  - Coma scale abnormal [Recovered/Resolved]
  - Bronchospasm [Unknown]
  - Bradypnoea [Unknown]

NARRATIVE: CASE EVENT DATE: 20130214
